FAERS Safety Report 9626627 (Version 4)
Quarter: 2014Q1

REPORT INFORMATION
  Report Type: Report from Study
  Country: US (occurrence: US)
  Receive Date: 20131016
  Receipt Date: 20140128
  Transmission Date: 20141002
  Serious: Yes (Other)
  Sender: FDA-Public Use
  Company Number: US-ASTRAZENECA-2013SE75500

PATIENT
  Age: 24929 Day
  Sex: Female

DRUGS (13)
  1. AZD6140 [Suspect]
     Indication: CORONARY ARTERY DISEASE
     Route: 048
     Dates: start: 20111012, end: 20130607
  2. ASPIRIN [Suspect]
     Route: 048
     Dates: end: 20130606
  3. SIMVASTATIN [Concomitant]
     Indication: HYPERLIPIDAEMIA
     Route: 048
     Dates: end: 20110911
  4. SIMVASTATIN [Concomitant]
     Indication: HYPERLIPIDAEMIA
     Route: 048
     Dates: start: 20111012
  5. LEVOTHYROXINE [Concomitant]
     Indication: HYPOTHYROIDISM
     Route: 048
  6. CALCIUM+VIT D [Concomitant]
     Indication: ELECTROLYTE SUBSTITUTION THERAPY
     Route: 048
  7. NITROGLYCERIN [Concomitant]
     Indication: ANGINA PECTORIS
     Route: 060
  8. COENZYME Q 10 [Concomitant]
     Indication: ENZYME SUPPLEMENTATION
     Route: 048
  9. VITAMIN B 12 [Concomitant]
     Indication: VITAMIN B12 DEFICIENCY
     Route: 048
  10. RAMIPRIL [Concomitant]
     Indication: ISCHAEMIC HEART DISEASE PROPHYLAXIS
     Route: 048
  11. METOPROLOL TARTATE [Concomitant]
     Indication: MYOCARDIAL ISCHAEMIA
     Route: 048
  12. FISH OIL [Concomitant]
     Indication: HYPERLIPIDAEMIA
     Route: 048
  13. SERTRALINE [Concomitant]
     Indication: DEPRESSION
     Route: 048

REACTIONS (1)
  - Iron deficiency anaemia [Recovered/Resolved]
